FAERS Safety Report 6962488-1 (Version None)
Quarter: 2010Q3

REPORT INFORMATION
  Report Type: 
  Country: None (occurrence: None)
  Receive Date: 20100902
  Receipt Date: 20100827
  Transmission Date: 20110219
  Serious: Yes (Death)
  Sender: FDA-Public Use
  Company Number: JP-JNJFOC-20100603861

PATIENT
  Sex: Female
  Weight: 35 kg

DRUGS (4)
  1. ITRIZOLE [Suspect]
     Indication: PRODUCT USED FOR UNKNOWN INDICATION
     Route: 042
  2. MEROPENEM TRIHYDRATE [Concomitant]
     Indication: PNEUMONIA BACTERIAL
     Route: 042
  3. METHYCOBAL [Concomitant]
     Indication: NEUROPATHY PERIPHERAL
     Route: 048
  4. RENAGEL [Concomitant]
     Indication: HYPERPHOSPHATAEMIA
     Route: 048

REACTIONS (4)
  - DERMATITIS EXFOLIATIVE [None]
  - IMMUNE SYSTEM DISORDER [None]
  - PNEUMONIA [None]
  - RENAL FAILURE CHRONIC [None]
